FAERS Safety Report 10054903 (Version 4)
Quarter: 2014Q2

REPORT INFORMATION
  Report Type: Spontaneous
  Country: US (occurrence: US)
  Receive Date: 20140402
  Receipt Date: 20140516
  Transmission Date: 20141212
  Serious: Yes (Death, Hospitalization, Other)
  Sender: FDA-Public Use
  Company Number: PHEH2009US019113

PATIENT
  Age: 71 Year
  Sex: Male

DRUGS (35)
  1. ZOMETA [Suspect]
     Indication: BONE LOSS
     Dosage: 4 MG, QMO
     Route: 065
     Dates: end: 200604
  2. ZOMETA [Suspect]
     Indication: OSTEOPOROSIS
  3. AREDIA [Suspect]
     Indication: BONE LOSS
     Dosage: 90 MG, TIW (EVERY THREE WEEKLY)
     Route: 042
     Dates: start: 19991028
  4. AREDIA [Suspect]
     Indication: OSTEOPOROSIS
     Dosage: 90 MG, QMO
     Route: 065
     Dates: start: 2002
  5. REMERON [Concomitant]
  6. ATIVAN [Concomitant]
  7. SEROQUEL [Concomitant]
  8. EFFEXOR [Concomitant]
  9. CARTIA [Concomitant]
  10. PROCRIT [Concomitant]
  11. ASPIRIN [Concomitant]
  12. COUMADIN [Concomitant]
  13. CORDARONE [Concomitant]
  14. IPRATROPIUM [Concomitant]
  15. PERIDEX [Concomitant]
  16. PRINIVIL [Concomitant]
  17. ANUSOL-HC                               /USA/ [Concomitant]
  18. FUROSEMIDE [Concomitant]
  19. AVANDIA [Concomitant]
  20. LANTUS [Concomitant]
  21. COUMADINE [Concomitant]
  22. ELAVIL [Concomitant]
  23. HYTRIN [Concomitant]
  24. PREDNISONE [Concomitant]
     Dosage: 20 MG, UNK
  25. LOTENSIN [Concomitant]
     Dosage: 20 MG, UNK
  26. ZOLOFT (SERTRALINE HYDROCHLORIDE) [Concomitant]
     Dosage: 50 MG, UNK
  27. VELOCEF [Concomitant]
     Dosage: 250 MG, UNK
  28. ALEVE [Concomitant]
     Dosage: 220 MG, QD
     Route: 048
  29. LYRICA [Concomitant]
     Dosage: 20 MG, QD
     Route: 048
  30. PSYLLIUM HUSK [Concomitant]
     Dosage: 1 DF, QD
     Route: 048
  31. THALOMID [Concomitant]
     Dosage: 50 MG, QHS
  32. AMBIEN [Concomitant]
     Dosage: 10 MG, QHS
     Route: 048
  33. REVLIMID [Concomitant]
     Dosage: 5 MG, QD
     Route: 048
  34. FLOMAX [Concomitant]
     Dosage: 0.4 MG, QHS
     Route: 048
  35. PREVACID [Concomitant]
     Dosage: 30 MG, BID
     Route: 048

REACTIONS (187)
  - Death [Fatal]
  - Pneumonia [Unknown]
  - Hypoxia [Unknown]
  - Hypocalcaemia [Unknown]
  - Bacteraemia [Unknown]
  - Septic shock [Unknown]
  - Metabolic acidosis [Unknown]
  - Ecchymosis [Unknown]
  - Pyrexia [Unknown]
  - Nausea [Unknown]
  - Vomiting [Unknown]
  - Fall [Unknown]
  - Unresponsive to stimuli [Unknown]
  - Circulatory collapse [Unknown]
  - Brain injury [Unknown]
  - Neck pain [Unknown]
  - Gastroenteritis [Unknown]
  - Musculoskeletal pain [Unknown]
  - Thrombocytopenia [Unknown]
  - Basosquamous carcinoma [Unknown]
  - Second primary malignancy [Unknown]
  - Plasma cell myeloma [Unknown]
  - Anaemia of malignant disease [Unknown]
  - Diverticulum intestinal [Unknown]
  - Iron deficiency anaemia [Unknown]
  - Hypertension [Unknown]
  - Rectal haemorrhage [Unknown]
  - Osteonecrosis of jaw [Unknown]
  - Injury [Unknown]
  - Pain [Unknown]
  - Anxiety [Unknown]
  - Exposed bone in jaw [Unknown]
  - Wound [Unknown]
  - Dental fistula [Unknown]
  - Gingival bleeding [Unknown]
  - General physical health deterioration [Unknown]
  - Compression fracture [Unknown]
  - Spinal osteoarthritis [Unknown]
  - Intervertebral disc protrusion [Unknown]
  - Pleural effusion [Unknown]
  - Atelectasis [Unknown]
  - Respiratory failure [Unknown]
  - Renal failure [Unknown]
  - Renal cyst [Unknown]
  - Cataract [Unknown]
  - Productive cough [Unknown]
  - Nasal congestion [Unknown]
  - Upper respiratory tract infection [Unknown]
  - Atrial flutter [Unknown]
  - Actinomycosis [Unknown]
  - Osteomyelitis [Unknown]
  - Syncope [Unknown]
  - Lung infiltration [Unknown]
  - Cardiomegaly [Unknown]
  - Peripheral sensory neuropathy [Unknown]
  - Benign prostatic hyperplasia [Unknown]
  - Pancytopenia [Unknown]
  - Herpes zoster [Unknown]
  - Post herpetic neuralgia [Unknown]
  - Type 2 diabetes mellitus [Unknown]
  - Hypothyroidism [Unknown]
  - Adrenal insufficiency [Unknown]
  - Meniere^s disease [Unknown]
  - Large intestine benign neoplasm [Unknown]
  - Haematochezia [Unknown]
  - Diarrhoea [Recovered/Resolved]
  - Dehydration [Unknown]
  - Decreased appetite [Unknown]
  - Hypovolaemia [Unknown]
  - Asthenia [Unknown]
  - Pulmonary fibrosis [Unknown]
  - Restrictive pulmonary disease [Unknown]
  - Mitral valve incompetence [Unknown]
  - Atrioventricular block first degree [Unknown]
  - Ventricular tachycardia [Unknown]
  - Open angle glaucoma [Unknown]
  - Type 1 diabetes mellitus [Unknown]
  - Posterior capsule opacification [Unknown]
  - Cutis laxa [Unknown]
  - Blepharitis [Unknown]
  - Bone cancer [Unknown]
  - Ankle fracture [Unknown]
  - Nephrolithiasis [Unknown]
  - Cellulitis [Unknown]
  - Hemiplegia [Unknown]
  - Cardiac failure congestive [Unknown]
  - Sepsis [Unknown]
  - Symbolic dysfunction [Unknown]
  - Multi-organ failure [Unknown]
  - Rotator cuff syndrome [Unknown]
  - Atrial fibrillation [Unknown]
  - Aortic arteriosclerosis [Unknown]
  - Left atrial dilatation [Unknown]
  - Left ventricular dysfunction [Unknown]
  - Hand fracture [Unknown]
  - Primary sequestrum [Unknown]
  - Excessive granulation tissue [Unknown]
  - Bacterial disease carrier [Unknown]
  - Inflammation [Unknown]
  - Convulsion [Unknown]
  - Sinus bradycardia [Unknown]
  - Bundle branch block right [Unknown]
  - Cerebral atrophy [Unknown]
  - Nervous system disorder [Unknown]
  - Microangiopathy [Unknown]
  - Encephalopathy [Not Recovered/Not Resolved]
  - Oral pain [Unknown]
  - Mouth ulceration [Unknown]
  - Lung disorder [Unknown]
  - Intervertebral disc compression [Unknown]
  - Spinal deformity [Unknown]
  - Renal failure chronic [Unknown]
  - Osteopenia [Unknown]
  - Loss of consciousness [Unknown]
  - Rib fracture [Unknown]
  - Urinary tract obstruction [Unknown]
  - Bronchitis bacterial [Unknown]
  - Respiratory distress [Unknown]
  - Dizziness [Unknown]
  - Renal artery stenosis [Unknown]
  - Lumbar spinal stenosis [Unknown]
  - Hypertrophy [Unknown]
  - Retroperitoneal haemorrhage [Unknown]
  - Pulmonary congestion [Unknown]
  - Pulmonary oedema [Unknown]
  - Hypotension [Unknown]
  - Retroperitoneal haematoma [Unknown]
  - Mental status changes [Unknown]
  - Urosepsis [Unknown]
  - Dementia Alzheimer^s type [Unknown]
  - Urinary tract infection [Unknown]
  - Clostridium difficile colitis [Unknown]
  - Hyperalbuminaemia [Unknown]
  - Hypothermia [Unknown]
  - Obstructive airways disorder [Unknown]
  - Coagulopathy [Unknown]
  - Contusion [Unknown]
  - Chest discomfort [Unknown]
  - Sinus tachycardia [Unknown]
  - Inflammatory bowel disease [Unknown]
  - Crohn^s disease [Unknown]
  - Ingrowing nail [Unknown]
  - Poikiloderma [Unknown]
  - Onychomycosis [Unknown]
  - Nail dystrophy [Unknown]
  - Tinea manuum [Unknown]
  - Hyperlipidaemia [Unknown]
  - Cholelithiasis [Unknown]
  - Vision blurred [Unknown]
  - Substance abuse [Unknown]
  - Eczema [Unknown]
  - Middle ear effusion [Unknown]
  - Rhinitis [Unknown]
  - Night sweats [Unknown]
  - Musculoskeletal chest pain [Unknown]
  - Arthritis [Unknown]
  - Osteonecrosis [Unknown]
  - Osteoarthritis [Unknown]
  - Cushingoid [Unknown]
  - Upper-airway cough syndrome [Unknown]
  - Eye irritation [Unknown]
  - Erythema [Unknown]
  - Haemorrhoids [Unknown]
  - Lower extremity mass [Unknown]
  - Hyperglycaemia [Unknown]
  - Vertigo [Unknown]
  - Osteolysis [Unknown]
  - Ear discomfort [Unknown]
  - Joint injury [Unknown]
  - Enterobacter pneumonia [Unknown]
  - Bone lesion [Unknown]
  - Fluid retention [Unknown]
  - Dilatation ventricular [Unknown]
  - Rhinorrhoea [Unknown]
  - Lacrimation increased [Unknown]
  - Gait disturbance [Unknown]
  - Bone pain [Unknown]
  - Alopecia [Unknown]
  - Sneezing [Unknown]
  - Papule [Unknown]
  - Pruritus [Unknown]
  - Hypoaesthesia [Unknown]
  - Cerebrovascular accident [Unknown]
  - Muscle atrophy [Unknown]
  - Major depression [Unknown]
  - Musculoskeletal discomfort [Unknown]
  - Burning sensation [Unknown]
